FAERS Safety Report 11472853 (Version 1)
Quarter: 2015Q3

REPORT INFORMATION
  Report Type: Spontaneous
  Country: US (occurrence: US)
  Receive Date: 20150908
  Receipt Date: 20150908
  Transmission Date: 20151125
  Serious: Yes (Other)
  Sender: FDA-Public Use
  Company Number: US-B.I. PHARMACEUTICALS,INC./RIDGEFIELD-2015-BI-47984BP

PATIENT
  Sex: Male
  Weight: 109 kg

DRUGS (1)
  1. COMBIVENT [Suspect]
     Active Substance: ALBUTEROL SULFATE\IPRATROPIUM BROMIDE
     Indication: PRODUCT USED FOR UNKNOWN INDICATION
     Dosage: FORMULATION: INHALATION AEROSOL STRENGTH: 18 MCG / 103 MCG;
     Route: 055
     Dates: end: 2011

REACTIONS (3)
  - Prostate cancer [Recovered/Resolved]
  - Pollakiuria [Not Recovered/Not Resolved]
  - Brain cancer metastatic [Not Recovered/Not Resolved]

NARRATIVE: CASE EVENT DATE: 2009
